FAERS Safety Report 8164246-1 (Version None)
Quarter: 2012Q1

REPORT INFORMATION
  Report Type: 
  Country: None (occurrence: None)
  Receive Date: 20120224
  Receipt Date: 20111207
  Transmission Date: 20120608
  Serious: No
  Sender: FDA-Public Use
  Company Number: US-ASTRAZENECA-2011SE74153

PATIENT
  Sex: Female

DRUGS (1)
  1. VIMOVO [Suspect]
     Dosage: 500 MG/20 MG, ONE TABLET TWO TIMES A DAY
     Route: 048
     Dates: start: 20111203

REACTIONS (3)
  - RASH GENERALISED [None]
  - GENERALISED OEDEMA [None]
  - URTICARIA [None]
